FAERS Safety Report 6718185-0 (Version None)
Quarter: 2010Q2

REPORT INFORMATION
  Report Type: 
  Country: None (occurrence: None)
  Receive Date: 20100510
  Receipt Date: 20100428
  Transmission Date: 20101027
  Serious: Yes (Other)
  Sender: FDA-Public Use
  Company Number: US-PFIZER INC-2007077139

PATIENT
  Sex: Female
  Weight: 83.9 kg

DRUGS (5)
  1. DILANTIN [Interacting]
     Indication: CONVULSION
     Dosage: 400 MG, DAILY
     Dates: start: 19700101
  2. DILANTIN [Interacting]
     Indication: GRAND MAL CONVULSION
  3. PLAVIX [Interacting]
     Indication: CARDIAC DISORDER
     Dosage: UNK
     Dates: start: 20100101
  4. LEVETIRACETAM [Suspect]
     Indication: GRAND MAL CONVULSION
     Dosage: UNK
     Dates: start: 20100301
  5. KEPPRA [Suspect]
     Indication: GRAND MAL CONVULSION
     Dosage: 1500 MG, 2X/DAY
     Dates: start: 20100412

REACTIONS (9)
  - BLOOD CHOLESTEROL INCREASED [None]
  - CARDIAC DISORDER [None]
  - DRUG INTERACTION [None]
  - DRUG TOXICITY [None]
  - DYSKINESIA [None]
  - GRAND MAL CONVULSION [None]
  - PETIT MAL EPILEPSY [None]
  - TOOTH LOSS [None]
  - VASCULAR PSEUDOANEURYSM [None]
